FAERS Safety Report 6517867-3 (Version None)
Quarter: 2009Q4

REPORT INFORMATION
  Report Type: 
  Country: None (occurrence: None)
  Receive Date: 20091224
  Receipt Date: 20091217
  Transmission Date: 20100525
  Serious: Yes (Hospitalization)
  Sender: FDA-Public Use
  Company Number: PHHO2009CA14774

PATIENT
  Sex: Male
  Weight: 86 kg

DRUGS (2)
  1. CERTICAN [Suspect]
     Indication: HEART TRANSPLANT
     Dosage: 1 MG, BID
     Route: 048
     Dates: start: 20090203, end: 20091210
  2. AMLODIPINE [Suspect]

REACTIONS (2)
  - BLOOD CREATININE INCREASED [None]
  - GENERALISED OEDEMA [None]
